FAERS Safety Report 7749074-0 (Version None)
Quarter: 2011Q3

REPORT INFORMATION
  Report Type: 
  Country: None (occurrence: None)
  Receive Date: 20110909
  Receipt Date: 20110830
  Transmission Date: 20111222
  Serious: Yes (Life-Threatening, Hospitalization)
  Sender: FDA-Public Use
  Company Number: 2011US005795

PATIENT
  Age: 68 Year
  Sex: Male
  Weight: 81.4 kg

DRUGS (31)
  1. BENADRYL [Concomitant]
  2. AMIODARONE (AMIODARONE HYDROCHLORIDE) [Concomitant]
  3. MULTIVITAMIN [Concomitant]
  4. MORPHINE [Concomitant]
  5. NAVELBINE [Concomitant]
  6. MAALOX (MAGNESIUM HYDROXIDE) [Concomitant]
  7. DECADRON [Concomitant]
  8. PROTONIX [Concomitant]
  9. SPIRIVA [Concomitant]
  10. CLARITIN [Concomitant]
  11. NEUPOGEN [Concomitant]
  12. ZOFRAN [Concomitant]
  13. CARBOPLATIN [Concomitant]
  14. FLOMAX [Concomitant]
  15. FOLIC ACID [Concomitant]
  16. POTASSIUM CHLORIDE [Concomitant]
  17. PLAVIX [Concomitant]
  18. ALOXI [Suspect]
     Indication: PROPHYLAXIS OF NAUSEA AND VOMITING
     Dosage: 0.25 MG, UNK, INTRAVENOUS
     Route: 042
     Dates: start: 20110301, end: 20110807
  19. ETOPOSIDE [Concomitant]
  20. NITROGLYCERIN [Concomitant]
  21. TAXOL [Concomitant]
  22. ASPIRIN [Concomitant]
  23. ZOLOFT [Concomitant]
  24. LIPITOR [Concomitant]
  25. ALBUTEROL SULFATE AUTOHALER [Concomitant]
  26. ADVAIR HFA [Concomitant]
  27. RESTORIL [Concomitant]
  28. ATIVAN [Concomitant]
  29. DULCOLAX [Concomitant]
  30. ALBUTEROL SULFATE [Concomitant]
  31. ACETAMINOPHEN [Concomitant]

REACTIONS (11)
  - PULSELESS ELECTRICAL ACTIVITY [None]
  - VENTRICULAR FIBRILLATION [None]
  - DEVICE RELATED INFECTION [None]
  - VENTRICULAR HYPERTROPHY [None]
  - CARDIAC ARREST [None]
  - ABSCESS [None]
  - AORTIC THROMBOSIS [None]
  - AORTIC ANEURYSM [None]
  - CYANOSIS [None]
  - STAPHYLOCOCCUS TEST POSITIVE [None]
  - LEFT ATRIAL DILATATION [None]
